FAERS Safety Report 5868095-6 (Version None)
Quarter: 2008Q3

REPORT INFORMATION
  Report Type: 
  Country: None (occurrence: None)
  Receive Date: 20080902
  Receipt Date: 20080415
  Transmission Date: 20090109
  Serious: No
  Sender: FDA-Public Use
  Company Number: US-ABBOTT-08P-163-0447558-00

PATIENT
  Age: 44 Year

DRUGS (4)
  1. DEPAKOTE ER [Suspect]
     Indication: DEPRESSION
     Route: 048
     Dates: start: 20080315
  2. DEPAKOTE ER [Suspect]
     Route: 048
     Dates: end: 20080415
  3. UNKNOWN ANTIDEPRESSANT [Concomitant]
     Indication: DEPRESSION
     Route: 048
  4. UNKNOWN ANTIDEPRESSANT [Concomitant]
     Route: 048

REACTIONS (3)
  - HEPATOMEGALY [None]
  - OEDEMA PERIPHERAL [None]
  - THROMBOCYTOPENIA [None]
